FAERS Safety Report 14347806 (Version 1)
Quarter: 2018Q1

REPORT INFORMATION
  Report Type: Spontaneous
  Country: US (occurrence: US)
  Receive Date: 20180103
  Receipt Date: 20180103
  Transmission Date: 20180509
  Serious: No
  Sender: FDA-Public Use
  Company Number: US-ELI_LILLY_AND_COMPANY-US201712012999

PATIENT
  Sex: Male

DRUGS (2)
  1. CIALIS [Suspect]
     Active Substance: TADALAFIL
     Dosage: 5 MG, PRN
     Route: 065
     Dates: start: 201712
  2. CIALIS [Suspect]
     Active Substance: TADALAFIL
     Indication: ERECTILE DYSFUNCTION
     Dosage: 20 MG, PRN
     Route: 065
     Dates: start: 201712

REACTIONS (1)
  - Incorrect dose administered [Unknown]
